FAERS Safety Report 20102213 (Version 1)
Quarter: 2021Q4

REPORT INFORMATION
  Report Type: Spontaneous
  Country: US (occurrence: US)
  Receive Date: 20211123
  Receipt Date: 20211123
  Transmission Date: 20220304
  Serious: Yes (Other)
  Sender: FDA-Public Use
  Company Number: US-PFIZER INC-202101564801

PATIENT
  Age: 81 Year
  Sex: Male

DRUGS (1)
  1. VYNDAMAX [Suspect]
     Active Substance: TAFAMIDIS
     Dosage: 61 MG

REACTIONS (4)
  - Cardiac amyloidosis [Unknown]
  - Type 2 diabetes mellitus [Unknown]
  - Chronic left ventricular failure [Unknown]
  - Hypertension [Unknown]
